FAERS Safety Report 22360003 (Version 11)
Quarter: 2024Q2

REPORT INFORMATION
  Report Type: Spontaneous
  Country: US (occurrence: US)
  Receive Date: 20230524
  Receipt Date: 20240520
  Transmission Date: 20240716
  Serious: Yes (Other)
  Sender: FDA-Public Use
  Company Number: US-SA-SAC20230524000251

PATIENT
  Age: 80 Year
  Sex: Male

DRUGS (14)
  1. PLAVIX [Suspect]
     Active Substance: CLOPIDOGREL BISULFATE
     Indication: Anticoagulant therapy
     Dosage: 75 MG, QD
     Route: 065
  2. ORGOVYX [Suspect]
     Active Substance: RELUGOLIX
     Indication: Prostate cancer
     Dosage: 360 MG
     Route: 048
     Dates: start: 20220816
  3. ORGOVYX [Suspect]
     Active Substance: RELUGOLIX
     Dosage: 120 MG, QD
     Route: 048
     Dates: start: 20220817
  4. ORGOVYX [Suspect]
     Active Substance: RELUGOLIX
     Dosage: UNK
  5. ORGOVYX [Suspect]
     Active Substance: RELUGOLIX
     Dosage: UNK
  6. ORGOVYX [Suspect]
     Active Substance: RELUGOLIX
     Dosage: UNK
  7. ORGOVYX [Suspect]
     Active Substance: RELUGOLIX
     Dosage: UNK
  8. ORGOVYX [Suspect]
     Active Substance: RELUGOLIX
     Dosage: UNK
  9. ORGOVYX [Suspect]
     Active Substance: RELUGOLIX
     Dosage: UNK
  10. ORGOVYX [Suspect]
     Active Substance: RELUGOLIX
     Dosage: UNK
  11. XTANDI [Suspect]
     Active Substance: ENZALUTAMIDE
     Indication: Prostate cancer
     Dosage: 160 MG, QD
     Route: 048
     Dates: start: 20220831, end: 20231128
  12. XTANDI [Suspect]
     Active Substance: ENZALUTAMIDE
     Dosage: 80 MG, QD
  13. ZINC [Concomitant]
     Active Substance: PYRITHIONE ZINC\ZINC\ZINC CHLORIDE
     Indication: Ageusia
     Dosage: UNK
  14. ZINC [Concomitant]
     Active Substance: PYRITHIONE ZINC\ZINC\ZINC CHLORIDE
     Indication: Dysgeusia

REACTIONS (26)
  - Prostate cancer [Unknown]
  - Sluggishness [Not Recovered/Not Resolved]
  - Muscle atrophy [Unknown]
  - Nasopharyngitis [Unknown]
  - Decreased appetite [Recovered/Resolved]
  - Asthenia [Not Recovered/Not Resolved]
  - Drug interaction [Unknown]
  - Condition aggravated [Unknown]
  - Weight decreased [Recovering/Resolving]
  - Acarodermatitis [Unknown]
  - Dry skin [Unknown]
  - Skin exfoliation [Unknown]
  - Fall [Unknown]
  - Joint injury [Not Recovered/Not Resolved]
  - Constipation [Not Recovered/Not Resolved]
  - Ageusia [Not Recovered/Not Resolved]
  - Dysgeusia [Recovered/Resolved]
  - Myalgia [Unknown]
  - Arthralgia [Unknown]
  - Angioplasty [Unknown]
  - Stent placement [Unknown]
  - Therapy interrupted [Unknown]
  - Prostatic specific antigen increased [Unknown]
  - Adverse drug reaction [Unknown]
  - Malaise [Unknown]
  - Product use complaint [Unknown]
